FAERS Safety Report 7201081-2 (Version None)
Quarter: 2010Q4

REPORT INFORMATION
  Report Type: 
  Country: None (occurrence: None)
  Receive Date: 20101229
  Receipt Date: 20100217
  Transmission Date: 20110411
  Serious: No
  Sender: FDA-Public Use
  Company Number: 2010BI005584

PATIENT
  Age: 63 Year
  Sex: Female

DRUGS (2)
  1. TYSABRI [Suspect]
     Indication: MULTIPLE SCLEROSIS
     Route: 042
     Dates: start: 20080124
  2. AVONEX [Concomitant]
     Indication: MULTIPLE SCLEROSIS
     Route: 030
     Dates: start: 19970801

REACTIONS (7)
  - BALANCE DISORDER [None]
  - DIZZINESS [None]
  - JOINT INJURY [None]
  - LIMB INJURY [None]
  - SYNCOPE [None]
  - URINARY TRACT DISORDER [None]
  - WEIGHT INCREASED [None]
